FAERS Safety Report 8239417-6 (Version None)
Quarter: 2012Q1

REPORT INFORMATION
  Report Type: 
  Country: None (occurrence: None)
  Receive Date: 20120328
  Receipt Date: 20120321
  Transmission Date: 20120608
  Serious: Yes (Hospitalization)
  Sender: FDA-Public Use
  Company Number: US-BAYER-2011-063041

PATIENT
  Age: 27 Year
  Sex: Female
  Weight: 56.689 kg

DRUGS (9)
  1. TYLENOL W/ CODEINE [Concomitant]
     Dosage: UNK
     Route: 048
     Dates: start: 20090309
  2. YAZ [Suspect]
     Indication: CONTRACEPTION
     Dates: start: 20070101, end: 20090301
  3. EXCEDRIN [ACETYLSALICYLIC ACID,CAFFEINE,PARACETAMOL,SALICYLAMIDE] [Concomitant]
     Dosage: UNK
     Route: 048
     Dates: start: 20090309
  4. XANAX [Concomitant]
     Dosage: UNK
     Route: 048
     Dates: start: 20090309
  5. OFLOXACIN [Concomitant]
     Dosage: 0.3 %, UNK
     Route: 061
     Dates: start: 20090126
  6. VICODIN [Concomitant]
     Dosage: UNK
     Route: 048
     Dates: start: 20090309
  7. YASMIN [Suspect]
     Indication: CONTRACEPTION
     Dates: start: 20090101
  8. AMBIEN [Concomitant]
     Dosage: UNK
     Route: 048
     Dates: start: 20090309
  9. ERYTHROMYCIN [Concomitant]
     Dosage: 2 %, UNK
     Route: 061
     Dates: start: 20080818, end: 20090514

REACTIONS (6)
  - CHOLECYSTITIS CHRONIC [None]
  - ABDOMINAL PAIN UPPER [None]
  - QUALITY OF LIFE DECREASED [None]
  - GALLBLADDER DISORDER [None]
  - DYSPEPSIA [None]
  - ABDOMINAL DISCOMFORT [None]
